FAERS Safety Report 24616915 (Version 3)
Quarter: 2025Q2

REPORT INFORMATION
  Report Type: Report from Study
  Country: US (occurrence: US)
  Receive Date: 20241114
  Receipt Date: 20250513
  Transmission Date: 20250717
  Serious: Yes (Hospitalization, Other)
  Sender: UCB
  Company Number: US-UCBSA-2024058651

PATIENT
  Age: 65 Year
  Sex: Male

DRUGS (2)
  1. BIMEKIZUMAB [Suspect]
     Active Substance: BIMEKIZUMAB
     Indication: Psoriasis
     Dosage: 320 MILLIGRAM, EV 4 WEEKS
     Route: 058
     Dates: start: 20240402, end: 2024
  2. BIMEKIZUMAB [Suspect]
     Active Substance: BIMEKIZUMAB
     Dosage: 320 MILLIGRAM, EV 8 WEEKS
     Route: 058
     Dates: start: 2024

REACTIONS (9)
  - Spinal decompression [Recovering/Resolving]
  - Cyst removal [Recovering/Resolving]
  - Nerve compression [Recovering/Resolving]
  - Cyst [Recovering/Resolving]
  - Lumbar spinal stenosis [Not Recovered/Not Resolved]
  - Peroneal nerve palsy [Not Recovered/Not Resolved]
  - Sciatica [Recovering/Resolving]
  - Psoriasis [Not Recovered/Not Resolved]
  - Orthosis user [Not Recovered/Not Resolved]

NARRATIVE: CASE EVENT DATE: 20241029
